FAERS Safety Report 6064611-2 (Version None)
Quarter: 2009Q1

REPORT INFORMATION
  Report Type: 
  Country: None (occurrence: None)
  Receive Date: 20090203
  Receipt Date: 20090203
  Transmission Date: 20090719
  Serious: Yes (Hospitalization)
  Sender: FDA-Public Use
  Company Number: None

PATIENT
  Age: 40 Year
  Sex: Female
  Weight: 59.25 kg

DRUGS (15)
  1. WARFARIN SODIUM [Suspect]
     Indication: ATRIAL FIBRILLATION
     Dosage: 7.5MG DAILY PO
     Route: 048
  2. WARFARIN SODIUM [Suspect]
     Indication: EMBOLIC STROKE
     Dosage: 7.5MG DAILY PO
     Route: 048
  3. DIGOXIN [Concomitant]
  4. PREDNISONE [Concomitant]
  5. CITALOPRAM HYDROBROMIDE [Concomitant]
  6. NYSTATIN SWISH AND SWALLOW [Concomitant]
  7. ASPIRIN [Concomitant]
  8. MS CONTIN [Concomitant]
  9. ESOMEPRAZOLE MAGNESIUM [Concomitant]
  10. METOPROLOL TARTRATE [Concomitant]
  11. HYDROXYCHLOROQUINE SULFATE [Concomitant]
  12. ZOLPIDEM [Concomitant]
  13. FUROSEMIDE [Concomitant]
  14. FERROUS SULFATE TAB [Concomitant]
  15. ASCORBIC ACID [Concomitant]

REACTIONS (5)
  - BRAIN NATRIURETIC PEPTIDE INCREASED [None]
  - DIFFUSE ALVEOLAR DAMAGE [None]
  - INTERNATIONAL NORMALISED RATIO INCREASED [None]
  - RESPIRATORY DISTRESS [None]
  - WHITE BLOOD CELL COUNT INCREASED [None]
